FAERS Safety Report 20244847 (Version 2)
Quarter: 2022Q1

REPORT INFORMATION
  Report Type: Spontaneous
  Country: US (occurrence: US)
  Receive Date: 20211229
  Receipt Date: 20220111
  Transmission Date: 20220423
  Serious: No
  Sender: FDA-Public Use
  Company Number: US-HETERO-HET2021US02329

PATIENT

DRUGS (2)
  1. OSELTAMIVIR [Suspect]
     Active Substance: OSELTAMIVIR
     Indication: Influenza
     Dosage: 75 MILLIGRAM, BID
     Route: 048
     Dates: start: 20211219, end: 20211224
  2. VITAMIN D                          /00107901/ [Concomitant]
     Indication: Viral infection
     Dosage: UNK, QD
     Route: 065

REACTIONS (6)
  - Dry mouth [Recovered/Resolved]
  - Dry throat [Recovered/Resolved]
  - Dry skin [Recovered/Resolved]
  - Skin tightness [Recovered/Resolved]
  - Lip haemorrhage [Recovered/Resolved]
  - Epistaxis [Recovered/Resolved]
